FAERS Safety Report 21505056 (Version 1)
Quarter: 2022Q4

REPORT INFORMATION
  Report Type: Spontaneous
  Country: IT (occurrence: IT)
  Receive Date: 20221025
  Receipt Date: 20221025
  Transmission Date: 20230113
  Serious: Yes (Other)
  Sender: FDA-Public Use
  Company Number: None

PATIENT
  Age: 31 Year
  Sex: Male
  Weight: 100 kg

DRUGS (2)
  1. TECFIDERA [Suspect]
     Active Substance: DIMETHYL FUMARATE
     Indication: Multiple sclerosis
     Dosage: FIRST WEEK OF TREATMENT FROM 14/DEC/21: 120 MG X 2/DAY (INDUCTION), THEN SUBSEQUENTLY 240 MG X 2/...
     Route: 050
     Dates: start: 20211215, end: 20220913
  2. TECFIDERA [Suspect]
     Active Substance: DIMETHYL FUMARATE
     Dosage: FIRST WEEK OF TREATMENT FROM 14/DEC/21: 120 MG X 2/DAY (INDUCTION), THEN SUBSEQUENTLY 240 MG X 2/...
     Route: 050
     Dates: start: 20211214

REACTIONS (1)
  - Herpes zoster cutaneous disseminated [Recovered/Resolved with Sequelae]

NARRATIVE: CASE EVENT DATE: 20220908
